FAERS Safety Report 5054954-3 (Version None)
Quarter: 2006Q3

REPORT INFORMATION
  Report Type: 
  Country: None (occurrence: None)
  Receive Date: 20060719
  Receipt Date: 20060710
  Transmission Date: 20061208
  Serious: Yes (Hospitalization)
  Sender: FDA-Public Use
  Company Number: 2006SE03854

PATIENT
  Age: 852 Month
  Sex: Male
  Weight: 54 kg

DRUGS (2)
  1. BLOPRESS [Suspect]
     Indication: CARDIAC FAILURE CHRONIC
     Route: 048
     Dates: start: 20060530, end: 20060610
  2. HALFDIGOXIN [Concomitant]
     Indication: CARDIAC FAILURE CHRONIC
     Route: 048
     Dates: start: 20030420

REACTIONS (2)
  - ANAEMIA [None]
  - CARDIAC FAILURE [None]
